FAERS Safety Report 15834980 (Version 2)
Quarter: 2019Q2

REPORT INFORMATION
  Report Type: Spontaneous
  Country: US (occurrence: US)
  Receive Date: 20190116
  Receipt Date: 20190416
  Transmission Date: 20190711
  Serious: No
  Sender: FDA-Public Use
  Company Number: US-CHILTERN-US-2018-000225

PATIENT
  Age: 60 Year
  Sex: Female
  Weight: 46.71 kg

DRUGS (6)
  1. TIMOLOL. [Concomitant]
     Active Substance: TIMOLOL
     Indication: GLAUCOMA
     Dosage: UNK, BOTH EYES BID
     Route: 047
     Dates: start: 201901
  2. ARTIFICIAL TEARS                   /00222401/ [Concomitant]
     Active Substance: PROPYLENE GLYCOL
     Indication: GLAUCOMA
     Dosage: UNK,AS NEEDED
     Route: 047
     Dates: start: 201901
  3. MURO 128 [Concomitant]
     Active Substance: SODIUM CHLORIDE
     Indication: GLAUCOMA
     Dosage: UNK,BOTH EYES 4-6 TIMES DAILY
     Route: 047
     Dates: start: 201901
  4. RHOPRESSA [Suspect]
     Active Substance: NETARSUDIL MESYLATE
     Indication: GLAUCOMA
     Dosage: 1 GTT, QD, NIGHTLY RIGHT EYE,
     Route: 047
     Dates: start: 201810, end: 201810
  5. PREDNISOLONE ACETATE. [Concomitant]
     Active Substance: PREDNISOLONE ACETATE
     Indication: GLAUCOMA
     Dosage: UNK,BOTH EYES BID
     Route: 047
     Dates: start: 201901
  6. COSOPT [Concomitant]
     Active Substance: DORZOLAMIDE HYDROCHLORIDE\TIMOLOL MALEATE
     Indication: GLAUCOMA
     Dosage: UNK,BOTH EYES 3 TIMES DAILY
     Route: 047
     Dates: start: 201901

REACTIONS (1)
  - Dyschromatopsia [Recovered/Resolved]

NARRATIVE: CASE EVENT DATE: 201810
